FAERS Safety Report 10236702 (Version 1)
Quarter: 2014Q1

REPORT INFORMATION
  Report Type: Spontaneous
  Country: US (occurrence: None)
  Receive Date: 20140306
  Receipt Date: 20140306
  Transmission Date: 20141002
  Serious: Yes (Hospitalization)
  Sender: FDA-Public Use
  Company Number: 163-21880-13092316

PATIENT
  Age: 51 Year
  Sex: Female

DRUGS (20)
  1. REVLIMID (LENALIDOMIDE) (10 MILLIGRAM, CAPSULES) [Suspect]
     Indication: PLASMA CELL MYELOMA
     Route: 048
     Dates: start: 20130717
  2. BISACODYL (BISACODYL) [Concomitant]
  3. TYLENOL (PARACETAMOL) [Concomitant]
  4. CALCIUM CARBONATE (CALCIUM CARBONATE) (CALCIUM CARBONATE) [Concomitant]
  5. CLARITIN (LORATADINE) [Concomitant]
  6. BENADRYL (DIPHENHYDRAMINE HYDROCHLORIDE) [Concomitant]
  7. BACTRIM (BACTRIM) (SULFAMETHOXAZOLE, TRIMETHOPRIM) [Concomitant]
  8. MORPHINE SULFATE (MORPHINE SULFATE) INJECTION [Concomitant]
  9. PERCOCET (OXYCOCET) [Concomitant]
  10. CENTURY MULTIVITAMIN (MULTIVITAMINS) [Concomitant]
  11. SENNA PLUS (OTHER LAXATIVES) [Concomitant]
  12. FIRST MARY^S MOUTHWASH (OTHER AGENTS FOR LOCAL ORAL TREATMENT) [Concomitant]
  13. LASIX (FUROSEMIDE) [Concomitant]
  14. PROTONIX [Concomitant]
  15. ROBITUSSIN COUGH-COLD D (OTHER COLD PREPARATIONS) [Concomitant]
  16. DEXAMETHASONE (DEXAMETHASONE) [Concomitant]
  17. POTASSIUM CHLORIDE (POTASSIUM CHLORIDE) [Concomitant]
  18. HCTZ (HYROCHLOROTHIAZIDE) [Concomitant]
  19. ACYCLOVIR (ACICLOVIR) (ACICLOVIR) [Concomitant]
  20. ZOFRAN (ONDANSETRON HYDROCHLORIDE) [Concomitant]

REACTIONS (1)
  - Deep vein thrombosis [None]
